FAERS Safety Report 7765378-X (Version None)
Quarter: 2011Q3

REPORT INFORMATION
  Report Type: 
  Country: None (occurrence: None)
  Receive Date: 20110921
  Receipt Date: 20110915
  Transmission Date: 20111222
  Serious: Yes (Hospitalization)
  Sender: FDA-Public Use
  Company Number: US-ABBOTT-11P-163-0855982-00

PATIENT
  Age: 49 Year
  Sex: Male

DRUGS (7)
  1. LANTUS [Concomitant]
     Indication: DIABETES MELLITUS
  2. PERCOCET [Concomitant]
     Indication: BACK PAIN
     Dosage: 10/325MG
  3. GLIPIZIDE [Concomitant]
     Indication: DIABETES MELLITUS
  4. TEKTURNA [Concomitant]
     Indication: HYPERTENSION
  5. HUMIRA [Suspect]
  6. METFORMIN HCL [Concomitant]
     Indication: DIABETES MELLITUS
  7. HUMIRA [Suspect]
     Indication: PSORIASIS
     Dosage: 80 MG INITIAL DOSE
     Dates: start: 20110902, end: 20110902

REACTIONS (4)
  - HERNIA [None]
  - ABDOMINAL PAIN [None]
  - INJECTION SITE SWELLING [None]
  - INJECTION SITE PAIN [None]
